FAERS Safety Report 10616482 (Version 3)
Quarter: 2015Q3

REPORT INFORMATION
  Report Type: Spontaneous
  Country: US (occurrence: US)
  Receive Date: 20141201
  Receipt Date: 20150819
  Transmission Date: 20151125
  Serious: Yes (Hospitalization, Other)
  Sender: FDA-Public Use
  Company Number: US-BAYER-2014-174696

PATIENT
  Age: 27 Year
  Sex: Female
  Weight: 53.52 kg

DRUGS (1)
  1. YASMIN [Suspect]
     Active Substance: DROSPIRENONE\ETHINYL ESTRADIOL
     Dosage: UNK
     Dates: start: 20020510, end: 20061227

REACTIONS (16)
  - Anosmia [None]
  - Embolic cerebral infarction [None]
  - Deep vein thrombosis [None]
  - Aphasia [None]
  - Paraesthesia [None]
  - General physical health deterioration [None]
  - Ageusia [None]
  - Agraphia [None]
  - Cerebrovascular accident [None]
  - Injury [None]
  - Pain [None]
  - Hypoaesthesia [None]
  - Stress [None]
  - Hypertension [None]
  - Asthenia [None]
  - Malaise [None]

NARRATIVE: CASE EVENT DATE: 20100120
